FAERS Safety Report 8925319 (Version 1)
Quarter: 2012Q4

REPORT INFORMATION
  Report Type: 
  Country: US (occurrence: US)
  Receive Date: 20121126
  Receipt Date: 20121126
  Transmission Date: 20130627
  Serious: Yes (Hospitalization, Other)
  Sender: FDA-Public Use
  Company Number: US-AMGEN-USASP2012075278

PATIENT
  Sex: Female

DRUGS (1)
  1. ENBREL [Suspect]
     Dosage: UNK
     Route: 064
     Dates: start: 20010101, end: 201111

REACTIONS (3)
  - Foetal heart rate deceleration [Recovered/Resolved]
  - Oxygen saturation decreased [Recovered/Resolved]
  - Premature baby [Recovered/Resolved]
